FAERS Safety Report 17110365 (Version 1)
Quarter: 2019Q4

REPORT INFORMATION
  Report Type: Report from Study
  Country: US (occurrence: US)
  Receive Date: 20191204
  Receipt Date: 20191204
  Transmission Date: 20200122
  Serious: Yes (Other)
  Sender: FDA-Public Use
  Company Number: US-ROCHE-2491108

PATIENT
  Age: 35 Year
  Sex: Female

DRUGS (1)
  1. ALTEPLASE. [Suspect]
     Active Substance: ALTEPLASE
     Indication: PULMONARY EMBOLISM
     Dosage: 1 MG/H PER CATHETER (RANGE 6 TO 12 MG; 1 VS. 2 LUNGS)
     Route: 042

REACTIONS (2)
  - Anaemia [Unknown]
  - Haemorrhage [Unknown]
